FAERS Safety Report 7745773-5 (Version None)
Quarter: 2011Q3

REPORT INFORMATION
  Report Type: 
  Country: None (occurrence: None)
  Receive Date: 20110907
  Receipt Date: 20110823
  Transmission Date: 20111222
  Serious: Yes (Hospitalization, Disabling)
  Sender: FDA-Public Use
  Company Number: TPG2011A02252

PATIENT
  Age: 72 Year
  Sex: Female

DRUGS (39)
  1. AMLODIPINE [Concomitant]
  2. RAMILICH COMP (HYDROCHLOROTHIAZIDE, RAMIPRIL) [Concomitant]
  3. SALVIANTHYMOL N (MENTHOL, THYMOL, EUCALYPTUS GLOBULUS OIL, FOENICULM V [Concomitant]
  4. CIPROHEXAL (CIPROFLOXACIN) [Concomitant]
  5. PREDNISONE TAB [Concomitant]
  6. CIPROBETA (CIPROFLOXACIN HYDROCHLORIDE) [Concomitant]
  7. OPIPRAMOL [Concomitant]
  8. COMPETACT (PIOGLITAZONE HYDROCHLORIDE, METFORMIN HYDROCHLORIDE) PIOGLI [Suspect]
     Indication: TYPE 2 DIABETES MELLITUS
     Dosage: 30/1700 MG, PER ORAL
     Route: 048
     Dates: start: 20070130, end: 20100905
  9. INSULIN [Concomitant]
  10. PANTOPRAZOLE SODIUM [Concomitant]
  11. AMLODIPIN DEXCEL (AMLODIPINE MALEATE) [Concomitant]
  12. REISE TABLETTEN RATIOPHARM (DIMENHYDRINATE) [Concomitant]
  13. CANEPHRON N (HERBAL EXTRACT NOS) [Concomitant]
  14. SIMVASTATIN [Concomitant]
  15. TRENTAL [Concomitant]
  16. CEFASEL (SODIUM SELENITE) [Concomitant]
  17. ACTOS [Suspect]
     Indication: TYPE 2 DIABETES MELLITUS
     Dosage: 45 MG (45 MG 1-2), PER ORAL
     Route: 048
     Dates: start: 20060411, end: 20070129
  18. SIMVASTATIN 1A PHARMA GMBH (SIMVASTATIN) [Concomitant]
  19. SILOMAT (CLOBUTINOL HYDROCHLORIDE) [Concomitant]
  20. DIGOX-CT (ACETYLDIGOXIN) [Concomitant]
  21. DOXY 100 (DOXYCYCLINE HYDROCHLORIDE) [Concomitant]
  22. ZINKOROT (ZINC) [Concomitant]
  23. GINGIUM (GINKGO BILOBA EXTRACT) [Concomitant]
  24. MOXODURA (MOXONIDINE) [Concomitant]
  25. LEVOTHYROXINE SODIUM [Concomitant]
  26. KAMILLOSAN (MATRICARIA RECUTTIA) [Concomitant]
  27. PREDNISOLONE [Concomitant]
  28. COTRIM DS [Concomitant]
  29. IBUPROFEN [Concomitant]
  30. RAMIPRIL DURA PLUS (HYDROCHLOROTHIAZIDE, RAMIPRIL) [Concomitant]
  31. MOXONIDIN AAA PHARMA (MOXONIDINE) [Concomitant]
  32. HANSAPLAST MED ABC WAERME (CAPSAICIN) [Concomitant]
  33. PANTOPRAZOL (PANTOPRAZOLE SODIUM) [Concomitant]
  34. DIAZEPAM [Concomitant]
  35. HEPARIN-RATIOPHARM (HEPARIN SODIUM) [Concomitant]
  36. BIOCHEMIE DHU (RANITIDINE HYDROCHLORIDE) [Concomitant]
  37. EUCREAS (METFORMIN HYDROCHLORIDE, VILDAGLIPTIN) [Concomitant]
  38. CALCIUM SANDOZ FORTE (COLECALCIFEROL, CALCIUM CARBONATE, CALCIUM GLUCE [Concomitant]
  39. OMEPRAZOLE STADA (OMEPRAZOLE) [Concomitant]

REACTIONS (3)
  - METASTASES TO RETROPERITONEUM [None]
  - CYSTITIS [None]
  - BLADDER CANCER [None]
